FAERS Safety Report 10928158 (Version 1)
Quarter: 2015Q1

REPORT INFORMATION
  Report Type: Spontaneous
  Country: US (occurrence: US)
  Receive Date: 20150319
  Receipt Date: 20150319
  Transmission Date: 20150721
  Serious: No
  Sender: FDA-Public Use
  Company Number: US-BIOGENIDEC-2015BI031766

PATIENT
  Age: 64 Year
  Sex: Female

DRUGS (1)
  1. TECFIDERA [Suspect]
     Active Substance: DIMETHYL FUMARATE
     Indication: MULTIPLE SCLEROSIS
     Route: 048
     Dates: start: 20140415

REACTIONS (13)
  - Heart rate increased [Unknown]
  - Flushing [Unknown]
  - Fall [Recovered/Resolved]
  - Emotional disorder [Unknown]
  - Stress [Unknown]
  - Pruritus [Unknown]
  - Gastric disorder [Unknown]
  - Peripheral swelling [Unknown]
  - Muscular weakness [Unknown]
  - Pharyngeal oedema [Unknown]
  - Swelling face [Unknown]
  - Hypertension [Unknown]
  - Dyspnoea [Unknown]

NARRATIVE: CASE EVENT DATE: 201501
